FAERS Safety Report 10258591 (Version 6)
Quarter: 2018Q2

REPORT INFORMATION
  Report Type: Report from Study
  Country: US (occurrence: US)
  Receive Date: 20140625
  Receipt Date: 20180525
  Transmission Date: 20180711
  Serious: Yes (Other)
  Sender: FDA-Public Use
  Company Number: US-SA-2013SA123715

PATIENT
  Age: 47 Year
  Sex: Female
  Weight: 94.3 kg

DRUGS (27)
  1. DULOXETINE HYDROCHLORIDE. [Concomitant]
     Active Substance: DULOXETINE HYDROCHLORIDE
     Indication: DEPRESSION
     Dosage: 90 MG, QD
  2. MAXALT [Concomitant]
     Active Substance: RIZATRIPTAN BENZOATE
     Indication: MIGRAINE
     Dosage: 20 MG, PRN
  3. NYSTATIN DIHYDRATE [Concomitant]
     Indication: RASH
     Dosage: UNK UNK, PRN
  4. VITAMIN D3 [Concomitant]
     Active Substance: CHOLECALCIFEROL
     Dosage: 5000 UNK
  5. MVI [VITAMINS NOS] [Concomitant]
     Dosage: 1 DF, QD
  6. LYRICA [Concomitant]
     Active Substance: PREGABALIN
     Dosage: 150 MG, QD
  7. GILENYA [Concomitant]
     Active Substance: FINGOLIMOD HYDROCHLORIDE
     Dosage: UNK
     Dates: start: 2012
  8. TERIFLUNOMIDE [Suspect]
     Active Substance: TERIFLUNOMIDE
     Dosage: 14 MG,QD
     Route: 048
     Dates: start: 20130320
  9. REBIF [Concomitant]
     Active Substance: INTERFERON BETA-1A
     Dosage: UNK
     Dates: start: 2011
  10. TYLENOL [Concomitant]
     Active Substance: ACETAMINOPHEN
     Indication: HEADACHE
     Dosage: 325 MG
  11. FISH OIL [Concomitant]
     Active Substance: FISH OIL
     Dosage: 1000 MG, QD
  12. DULOXETINE HYDROCHLORIDE. [Concomitant]
     Active Substance: DULOXETINE HYDROCHLORIDE
     Indication: PAIN
  13. MORPHINE SULFATE ANHYDROUS [Concomitant]
     Indication: BACK PAIN
     Dosage: 15 MG, BID
  14. LYRICA [Concomitant]
     Active Substance: PREGABALIN
     Indication: RESTLESS LEGS SYNDROME
     Dosage: 150 MG, BID
  15. IODINE. [Concomitant]
     Active Substance: IODINE
     Dosage: UNK
  16. BACLOFEN. [Concomitant]
     Active Substance: BACLOFEN
     Indication: MUSCLE SPASMS
     Dosage: 20 MG, PRN
  17. VITAMIN C-500 COMPLEX [Concomitant]
     Dosage: 1 UNK
  18. MAGNESIUM CHELATE;ZINC [Concomitant]
     Dosage: 1 DF
  19. TERIFLUNOMIDE [Suspect]
     Active Substance: TERIFLUNOMIDE
     Indication: MULTIPLE SCLEROSIS
     Dosage: 14 MG,QD
     Route: 048
     Dates: start: 20121221
  20. ARMODAFINIL. [Concomitant]
     Active Substance: ARMODAFINIL
     Indication: FATIGUE
     Dosage: 250 MG, QD
     Dates: start: 201711
  21. IMITREX [SUMATRIPTAN SUCCINATE] [Concomitant]
     Indication: MIGRAINE
     Dosage: 200 MG, PRN
  22. TYLENOL [Concomitant]
     Active Substance: ACETAMINOPHEN
     Indication: PAIN
  23. TOPIRAMATE. [Concomitant]
     Active Substance: TOPIRAMATE
     Indication: MIGRAINE
     Dosage: 50 MG, BID
  24. COPAXONE [Concomitant]
     Active Substance: GLATIRAMER ACETATE
     Dosage: UNK
  25. BUSPIRONE HCL [Concomitant]
     Active Substance: BUSPIRONE HYDROCHLORIDE
     Indication: ANXIETY
     Dosage: 10 MG, BID
  26. METHYLPHENIDATE. [Concomitant]
     Active Substance: METHYLPHENIDATE
     Indication: FATIGUE
     Dosage: 10 MG, TID
     Dates: start: 201711
  27. IRON [Concomitant]
     Active Substance: IRON
     Dosage: 65 MG, QD

REACTIONS (16)
  - Uterine disorder [Unknown]
  - Mood altered [Unknown]
  - Condition aggravated [Unknown]
  - Dental caries [Unknown]
  - Tooth injury [Unknown]
  - Back pain [Unknown]
  - Dry mouth [Unknown]
  - Fatigue [Unknown]
  - Thinking abnormal [Unknown]
  - Memory impairment [Unknown]
  - Insomnia [Unknown]
  - Cough [Unknown]
  - Nasopharyngitis [Unknown]
  - Alopecia [Unknown]
  - Sensory disturbance [Unknown]
  - Nausea [Unknown]

NARRATIVE: CASE EVENT DATE: 2015
